FAERS Safety Report 7733382 (Version 3)
Quarter: 2016Q3

REPORT INFORMATION
  Report Type: Report from Study
  Country: JP (occurrence: JP)
  Receive Date: 20101223
  Receipt Date: 20160818
  Transmission Date: 20161109
  Serious: Yes (Death)
  Sender: FDA-Public Use
  Company Number: JP-PFIZER INC-JP-WYE-H18023610

PATIENT
  Age: 64 Year
  Sex: Female
  Weight: 60 kg

DRUGS (6)
  1. VENILON [Concomitant]
     Active Substance: HUMAN IMMUNOGLOBULIN G
     Indication: PNEUMONIA
     Dosage: 5 G, 1X/DAY
     Route: 041
     Dates: start: 20100126, end: 20100128
  2. GASTER [Concomitant]
     Active Substance: FAMOTIDINE
     Indication: PROPHYLAXIS
     Dosage: 2, 1X/DAY
     Route: 041
     Dates: start: 20100126, end: 20100213
  3. SOL-MELCORT [Concomitant]
     Active Substance: METHYLPREDNISOLONE SODIUM SUCCINATE
     Dosage: 500 MG, 1X/DAY
     Route: 041
     Dates: start: 20100126, end: 20100128
  4. ELASPOL [Concomitant]
     Active Substance: SIVELESTAT SODIUM
     Dosage: 300 MG, 1X/DAY
     Route: 041
     Dates: start: 20100128, end: 20100213
  5. VFEND [Concomitant]
     Active Substance: VORICONAZOLE
     Indication: INFECTION
     Dosage: 600 MG, 1X/DAY
     Route: 041
     Dates: start: 20100129, end: 20100203
  6. ZOSYN [Suspect]
     Active Substance: PIPERACILLIN SODIUM\TAZOBACTAM SODIUM
     Indication: PNEUMONIA
     Dosage: 4.5 G, 3X/DAY
     Route: 041
     Dates: start: 20100126, end: 20100201

REACTIONS (3)
  - Right ventricular failure [Fatal]
  - Interstitial lung disease [Fatal]
  - Liver disorder [Not Recovered/Not Resolved]

NARRATIVE: CASE EVENT DATE: 20100128
